FAERS Safety Report 4446090-1 (Version None)
Quarter: 2004Q3

REPORT INFORMATION
  Report Type: 
  Country: None (occurrence: None)
  Receive Date: 20040903
  Receipt Date: 20040825
  Transmission Date: 20050211
  Serious: Yes (Death)
  Sender: FDA-Public Use
  Company Number: USA-2004-0015874

PATIENT
  Age: 40 Year
  Sex: Female
  Weight: 86.6 kg

DRUGS (2)
  1. OXYCONTIN [Suspect]
     Indication: PAIN
     Dosage: 40 MG Q12H
  2. CIPRO [Concomitant]

REACTIONS (3)
  - BACK PAIN [None]
  - CERUMEN IMPACTION [None]
  - SINUSITIS [None]
